FAERS Safety Report 15264607 (Version 2)
Quarter: 2018Q3

REPORT INFORMATION
  Report Type: Spontaneous
  Country: US (occurrence: US)
  Receive Date: 20180810
  Receipt Date: 20180822
  Transmission Date: 20181010
  Serious: Yes (Hospitalization, Other)
  Sender: FDA-Public Use
  Company Number: PHHY2018US064891

PATIENT
  Age: 64 Year
  Sex: Female

DRUGS (5)
  1. TRIAMCINOLONE [Interacting]
     Active Substance: TRIAMCINOLONE
     Indication: ECZEMA
     Dosage: UNK, BID
     Route: 061
  2. FLUOCINONIDE. [Interacting]
     Active Substance: FLUOCINONIDE
     Indication: ECZEMA
     Dosage: UNK, BID
     Route: 061
  3. ECONAZOLE [Interacting]
     Active Substance: ECONAZOLE
     Indication: ECZEMA
     Dosage: UNK
     Route: 061
  4. KETOCONAZOLE. [Interacting]
     Active Substance: KETOCONAZOLE
     Indication: ECZEMA
     Dosage: UNK
     Route: 061
  5. CLOBETASOL [Suspect]
     Active Substance: CLOBETASOL
     Indication: ECZEMA
     Dosage: UNK, PRN
     Route: 061

REACTIONS (7)
  - Withdrawal syndrome [Recovering/Resolving]
  - Rash generalised [Recovering/Resolving]
  - Adrenal insufficiency [Recovering/Resolving]
  - Hypothalamic pituitary adrenal axis suppression [Recovering/Resolving]
  - Hyponatraemia [Recovering/Resolving]
  - Confusional state [Recovering/Resolving]
  - Drug interaction [Recovering/Resolving]
